FAERS Safety Report 7034678-3 (Version None)
Quarter: 2010Q4

REPORT INFORMATION
  Report Type: 
  Country: None (occurrence: None)
  Receive Date: 20101008
  Receipt Date: 20100929
  Transmission Date: 20110411
  Serious: Yes (Other)
  Sender: FDA-Public Use
  Company Number: US-ASTRAZENECA-2009SE05674

PATIENT
  Sex: Female

DRUGS (1)
  1. NEXIUM [Suspect]
     Route: 048

REACTIONS (3)
  - BONE NEOPLASM [None]
  - GASTROOESOPHAGEAL REFLUX DISEASE [None]
  - INCORRECT ROUTE OF DRUG ADMINISTRATION [None]
